FAERS Safety Report 18719380 (Version 1)
Quarter: 2021Q1

REPORT INFORMATION
  Report Type: Spontaneous
  Country: AT (occurrence: AT)
  Receive Date: 20210108
  Receipt Date: 20210108
  Transmission Date: 20210419
  Serious: Yes (Disabling)
  Sender: FDA-Public Use
  Company Number: AT-BAUSCH-BL-2020-039423

PATIENT
  Sex: Female

DRUGS (1)
  1. GENTAMICIN. [Suspect]
     Active Substance: GENTAMICIN
     Indication: OTOTOXICITY
     Route: 065

REACTIONS (1)
  - Deafness [Not Recovered/Not Resolved]
